FAERS Safety Report 21041277 (Version 3)
Quarter: 2022Q4

REPORT INFORMATION
  Report Type: Report from Study
  Country: US (occurrence: US)
  Receive Date: 20220705
  Receipt Date: 20221030
  Transmission Date: 20230112
  Serious: Yes (Hospitalization, Other)
  Sender: FDA-Public Use
  Company Number: US-ABBVIE-22K-163-4451189-00

PATIENT
  Age: 35 Year
  Sex: Female
  Weight: 56.245 kg

DRUGS (4)
  1. SKYRIZI [Suspect]
     Active Substance: RISANKIZUMAB-RZAA
     Indication: Psoriasis
     Route: 058
     Dates: start: 20220314
  2. SKYRIZI [Suspect]
     Active Substance: RISANKIZUMAB-RZAA
     Indication: Psoriatic arthropathy
     Route: 058
  3. SKYRIZI [Suspect]
     Active Substance: RISANKIZUMAB-RZAA
     Route: 058
     Dates: start: 20220214
  4. MODERNA COVID-19 VACCINE [Concomitant]
     Active Substance: ELASOMERAN
     Indication: COVID-19 immunisation
     Dosage: TIME INTERVAL: 1 TOTAL
     Route: 030

REACTIONS (14)
  - Staphylococcal infection [Recovered/Resolved]
  - Herpes zoster [Unknown]
  - Abscess neck [Recovered/Resolved]
  - Musculoskeletal stiffness [Unknown]
  - Heart rate increased [Unknown]
  - Arthropod bite [Unknown]
  - Psoriasis [Unknown]
  - Joint range of motion decreased [Unknown]
  - Pain [Unknown]
  - Chills [Unknown]
  - Pulmonary embolism [Unknown]
  - Pleurisy [Unknown]
  - Night sweats [Unknown]
  - Fear [Unknown]

NARRATIVE: CASE EVENT DATE: 20220501
